FAERS Safety Report 8150471 (Version 2)
Quarter: 2012Q4

REPORT INFORMATION
  Report Type: 
  Country: US (occurrence: US)
  Receive Date: 20110922
  Receipt Date: 20121106
  Transmission Date: 20130627
  Serious: No
  Sender: FDA-Public Use
  Company Number: US-ASTRAZENECA-2010SE30729

PATIENT
  Age: 61 Year
  Sex: Female
  Weight: 72.6 kg

DRUGS (13)
  1. SEROQUEL [Suspect]
     Indication: DEPRESSION
     Route: 048
  2. SEROQUEL [Suspect]
     Indication: DEPRESSION
     Route: 048
  3. CRESTOR [Suspect]
     Route: 048
  4. NEURONTIN [Concomitant]
     Indication: FIBROMYALGIA
  5. VICODAN [Concomitant]
     Indication: PAIN
  6. PLAVIX [Concomitant]
     Indication: CARDIAC DISORDER
  7. IMDUR [Concomitant]
     Indication: CARDIAC DISORDER
  8. ATNOLOL [Concomitant]
     Indication: BLOOD PRESSURE
  9. LISNINOPRIL [Concomitant]
     Indication: BLOOD PRESSURE
  10. SYNTHROID [Concomitant]
     Indication: HYPOTHYROIDISM
  11. VITAMIN D [Concomitant]
     Indication: PROPHYLAXIS
  12. VALIUM [Concomitant]
     Indication: ANXIETY
  13. PAXIL [Concomitant]
     Indication: ILL-DEFINED DISORDER

REACTIONS (2)
  - Insomnia [Unknown]
  - Drug dose omission [Unknown]
